FAERS Safety Report 6972846-7 (Version None)
Quarter: 2010Q3

REPORT INFORMATION
  Report Type: 
  Country: None (occurrence: None)
  Receive Date: 20100909
  Receipt Date: 20100827
  Transmission Date: 20110219
  Serious: Yes (Other)
  Sender: FDA-Public Use
  Company Number: PHHY2010MX57301

PATIENT
  Age: 65 Year
  Sex: Female

DRUGS (1)
  1. RASILEZ [Suspect]
     Indication: HYPERTENSION
     Dosage: 1 TABLET (150 MG ) PER DAY
     Dates: start: 20090101

REACTIONS (3)
  - DYSPNOEA [None]
  - HYPERTENSION [None]
  - RESPIRATORY ARREST [None]
